FAERS Safety Report 5232281-9 (Version None)
Quarter: 2007Q1

REPORT INFORMATION
  Report Type: 
  Country: None (occurrence: None)
  Receive Date: 20070205
  Receipt Date: 20070123
  Transmission Date: 20070707
  Serious: Yes (Death, Hospitalization)
  Sender: FDA-Public Use
  Company Number: THYR-10394

PATIENT
  Sex: Female

DRUGS (1)
  1. THYROGEN [Suspect]
     Indication: DRUG USE FOR UNKNOWN INDICATION
     Dates: start: 20020101, end: 20020101

REACTIONS (2)
  - BLOOD THYROID STIMULATING HORMONE INCREASED [None]
  - RETROPERITONEAL HAEMATOMA [None]
